FAERS Safety Report 5803881-X (Version None)
Quarter: 2008Q3

REPORT INFORMATION
  Report Type: 
  Country: None (occurrence: None)
  Receive Date: 20080707
  Receipt Date: 20080630
  Transmission Date: 20090109
  Serious: Yes (Hospitalization)
  Sender: FDA-Public Use
  Company Number: 062-C5013-08061796

PATIENT
  Age: 70 Year
  Sex: Male
  Weight: 60.1 kg

DRUGS (5)
  1. CC-5013 (LENALIDOMIDE) (CAPSULES) [Suspect]
     Indication: CHRONIC LYMPHOCYTIC LEUKAEMIA
     Dosage: 2.5 MG, ORAL; ORAL
     Route: 048
     Dates: start: 20080604, end: 20080627
  2. CC-5013 (LENALIDOMIDE) (CAPSULES) [Suspect]
     Indication: CHRONIC LYMPHOCYTIC LEUKAEMIA
     Dosage: 2.5 MG, ORAL; ORAL
     Route: 048
     Dates: start: 20070604
  3. PANTOPRAZOLE SODIUM [Concomitant]
  4. MAGNETRANS (MAGNESIUM ASPARTATE) [Concomitant]
  5. CLEMASTINE FUMARATE [Concomitant]

REACTIONS (1)
  - ILEUS [None]
